FAERS Safety Report 14193124 (Version 1)
Quarter: 2017Q4

REPORT INFORMATION
  Report Type: Spontaneous
  Country: US (occurrence: US)
  Receive Date: 20171116
  Receipt Date: 20171116
  Transmission Date: 20180321
  Serious: No
  Sender: FDA-Public Use
  Company Number: PHEH2017US036488

PATIENT
  Sex: Female

DRUGS (3)
  1. ILEVRO [Suspect]
     Active Substance: NEPAFENAC
     Indication: MACULAR DEGENERATION
     Route: 047
  2. METOPROLOL. [Concomitant]
     Active Substance: METOPROLOL
     Indication: BLOOD PRESSURE INCREASED
     Dosage: 1 DF, QD
     Route: 065
  3. LEVO T [Concomitant]
     Indication: THYROID DISORDER
     Route: 047

REACTIONS (1)
  - Malaise [Unknown]
